FAERS Safety Report 8791351 (Version 4)
Quarter: 2014Q4

REPORT INFORMATION
  Report Type: Spontaneous
  Country: US (occurrence: None)
  Receive Date: 20120912
  Receipt Date: 20141205
  Transmission Date: 20150529
  Serious: Yes (Hospitalization, Other)
  Sender: FDA-Public Use
  Company Number: 138849

PATIENT
  Age: 61 Year

DRUGS (3)
  1. ADRIAMYCIN [Suspect]
     Active Substance: DOXORUBICIN HYDROCHLORIDE
     Indication: PLASMA CELL MYELOMA
     Dosage: 20MG (20MG, DAY 1 AND DAY 8 EVERY 3 WEEKS) INTRAVEOUS (NOT OTHERWISE SPECIFIED)
     Route: 042
     Dates: start: 20110307, end: 20110714
  2. PAMIDRONATE [Suspect]
     Active Substance: PAMIDRONATE DISODIUM
     Indication: PLASMA CELL MYELOMA
     Dosage: 90MG (90MG, DAY 1 EVERY 3 WEEKS), INTRAVENOUS (NOT OTHERWISE SPECIFIED)
     Route: 042
     Dates: start: 20110307, end: 20110418
  3. VELCADE [Concomitant]
     Active Substance: BORTEZOMIB
     Indication: PLASMA CELL MYELOMA
     Dosage: 2.6MG (2.6MG, DAYS 1, 4, 8, 11 EVERY 3 WEEKS), INTRAVENOUS (NOT OTHERWISE SPECIFIED)
     Route: 042
     Dates: start: 20110307, end: 20110714

REACTIONS (5)
  - Hyperglycaemia [None]
  - Acute kidney injury [None]
  - Deep vein thrombosis [None]
  - Blood potassium increased [None]
  - Subclavian vein thrombosis [None]

NARRATIVE: CASE EVENT DATE: 20110509
